FAERS Safety Report 24235951 (Version 1)
Quarter: 2024Q3

REPORT INFORMATION
  Report Type: Spontaneous
  Country: US (occurrence: US)
  Receive Date: 20240822
  Receipt Date: 20240822
  Transmission Date: 20241017
  Serious: No
  Sender: ENDO
  Company Number: ENDB24-00560

PATIENT
  Sex: Male

DRUGS (12)
  1. TESTOPEL [Suspect]
     Active Substance: TESTOSTERONE
     Indication: Blood testosterone decreased
     Dosage: UNK UNKNOWN, UNKNOWN (CLOSE TO 7-8 YEARS, SINCE 2016 OR 2017)
     Route: 065
  2. TESTOPEL [Suspect]
     Active Substance: TESTOSTERONE
     Indication: Blood testosterone decreased
     Dosage: UNK UNKNOWN, UNKNOWN (CLOSE TO 7-8 YEARS, SINCE 2016 OR 2017)
     Route: 065
  3. TESTOPEL [Suspect]
     Active Substance: TESTOSTERONE
     Indication: Blood testosterone decreased
     Dosage: UNK UNKNOWN, UNKNOWN (CLOSE TO 7-8 YEARS, SINCE 2016 OR 2017)
     Route: 065
  4. TESTOPEL [Suspect]
     Active Substance: TESTOSTERONE
     Dosage: 12 DOSAGE FORM, UNKNOWN (12 PELLETS AT A TIME)
     Route: 065
  5. TESTOPEL [Suspect]
     Active Substance: TESTOSTERONE
     Dosage: 12 DOSAGE FORM, UNKNOWN (12 PELLETS AT A TIME)
     Route: 065
  6. TESTOPEL [Suspect]
     Active Substance: TESTOSTERONE
     Dosage: 12 DOSAGE FORM, UNKNOWN (12 PELLETS AT A TIME)
     Route: 065
  7. TESTOPEL [Suspect]
     Active Substance: TESTOSTERONE
     Dosage: 6 DOSAGE FORM, UNKNOWN (6 PELLETS AT A TIME)
     Route: 065
     Dates: start: 202106, end: 202206
  8. TESTOPEL [Suspect]
     Active Substance: TESTOSTERONE
     Dosage: 6 DOSAGE FORM, UNKNOWN (6 PELLETS AT A TIME)
     Route: 065
     Dates: start: 202106, end: 202206
  9. TESTOPEL [Suspect]
     Active Substance: TESTOSTERONE
     Dosage: 6 DOSAGE FORM, UNKNOWN (6 PELLETS AT A TIME)
     Route: 065
     Dates: start: 202106, end: 202206
  10. TESTOPEL [Suspect]
     Active Substance: TESTOSTERONE
     Dosage: 12 DOSAGE FORM, UNKNOWN (12 PELLETS AT A TIME, LAST THREE MONTHS)
     Route: 065
     Dates: start: 202311
  11. TESTOPEL [Suspect]
     Active Substance: TESTOSTERONE
     Dosage: 12 DOSAGE FORM, UNKNOWN (12 PELLETS AT A TIME, LAST THREE MONTHS)
     Route: 065
     Dates: start: 202311
  12. TESTOPEL [Suspect]
     Active Substance: TESTOSTERONE
     Dosage: 12 DOSAGE FORM, UNKNOWN (12 PELLETS AT A TIME, LAST THREE MONTHS)
     Route: 065
     Dates: start: 202311

REACTIONS (3)
  - Blood testosterone decreased [Unknown]
  - Therapeutic product effect decreased [Unknown]
  - Off label use [Unknown]
